FAERS Safety Report 9290061 (Version 2)
Quarter: 2013Q1

REPORT INFORMATION
  Report Type: Spontaneous
  Country: US (occurrence: None)
  Receive Date: 20121130
  Receipt Date: 20130117
  Transmission Date: 20140127
  Serious: Yes (Death, Hospitalization)
  Sender: FDA-Public Use
  Company Number: 2012-1155

PATIENT
  Age: 54 Year
  Sex: Male

DRUGS (9)
  1. KYPROLIS (CARFILZOMIB) (INJECTION FOR INFUSION) (CARFILZOMIB) [Suspect]
     Indication: PLASMA CELL MYELOMA
     Dosage: 15.4286 MG (54 MG. 2 IN 1 WK), INTRAVENOUS
     Route: 042
     Dates: start: 20120821, end: 20121003
  2. LISINOPRIL (LISINOPRIL) (LISINOPRIL) [Concomitant]
  3. AUGMENTIN (AMOXICILLIN SODIUM) (AMOXICILLIN SODIUM) [Concomitant]
  4. SULFA DRUG (SULFADIAZINE) (SULFADIAZINE) [Concomitant]
  5. HYDROCODONE (HYDROCODONE) (HYDROCOONE) [Concomitant]
  6. CELEXA (CITALOPRAM HYDROBROMIDE) (CITALOPRAM HYDROBROMIDE) [Concomitant]
  7. XANAX (ALPRAZOLAM) (ALPRAZOLAM) [Concomitant]
  8. DEXAMETHASONE (DEXAMETHASONE) (DEXAMETHASONE) [Concomitant]
  9. REVLIMID (LENALIDOMIDE) (LENALIDOMIDE) [Concomitant]

REACTIONS (8)
  - Panic attack [None]
  - Platelet count decreased [None]
  - Respiratory distress [None]
  - Cardiac failure [None]
  - Blood pressure decreased [None]
  - Heart rate increased [None]
  - Bronchitis viral [None]
  - Pneumonia [None]
